FAERS Safety Report 4685297-5 (Version None)
Quarter: 2005Q2

REPORT INFORMATION
  Report Type: 
  Country: None (occurrence: None)
  Receive Date: 20050531
  Receipt Date: 20050408
  Transmission Date: 20051028
  Serious: No
  Sender: FDA-Public Use
  Company Number: WAES 0504USA01231

PATIENT
  Age: 77 Year
  Sex: Female

DRUGS (14)
  1. ZETIA [Suspect]
     Indication: HYPERLIPIDAEMIA
     Dosage: 10 MG/DAILY/PO
     Route: 048
     Dates: start: 20040401, end: 20050401
  2. CIPRO [Concomitant]
  3. DARVOCET-N 100 [Concomitant]
  4. LASIX [Concomitant]
  5. LOPID [Concomitant]
  6. LOTREL [Concomitant]
  7. NEXIUM [Concomitant]
  8. PLAVIX [Concomitant]
  9. UNITHROID [Concomitant]
  10. AMTRIPTYLINE HYDROCHLORIDE [Concomitant]
  11. ASPIRIN [Concomitant]
  12. LORAZEPAM [Concomitant]
  13. MECLIZINE [Concomitant]
  14. NITROGLYCERIN [Concomitant]

REACTIONS (1)
  - SINUS DISORDER [None]
